FAERS Safety Report 5901092-0 (Version None)
Quarter: 2008Q3

REPORT INFORMATION
  Report Type: 
  Country: None (occurrence: None)
  Receive Date: 20080929
  Receipt Date: 20080916
  Transmission Date: 20090109
  Serious: Yes (Hospitalization, Disabling, Other)
  Sender: FDA-Public Use
  Company Number: US-ROCHE-580345

PATIENT
  Sex: Female
  Weight: 82.1 kg

DRUGS (4)
  1. BONIVA [Suspect]
     Indication: OSTEOPOROSIS
     Route: 048
     Dates: start: 20060731
  2. ZESTORETIC [Concomitant]
     Indication: HYPERTENSION
     Dosage: DOSE: 10-12.5 QD
     Route: 048
     Dates: start: 20070302
  3. CELEBREX [Concomitant]
     Indication: PLANTAR FASCIITIS
     Dosage: FREQUENCY: QD PRN
     Route: 048
     Dates: start: 20070928, end: 20080110
  4. CRESTOR [Concomitant]
     Dosage: FREQUENCY: QD
     Route: 048
     Dates: start: 20071008

REACTIONS (3)
  - ANGINA UNSTABLE [None]
  - CORONARY ARTERY DISEASE [None]
  - CORONARY ARTERY OCCLUSION [None]
